FAERS Safety Report 7919531-2 (Version None)
Quarter: 2011Q4

REPORT INFORMATION
  Report Type: 
  Country: None (occurrence: None)
  Receive Date: 20111115
  Receipt Date: 20111101
  Transmission Date: 20120403
  Serious: Yes (Death)
  Sender: FDA-Public Use
  Company Number: 2011-336

PATIENT
  Age: 90 Year
  Sex: Female

DRUGS (2)
  1. MORPHINE SULFATE INJ [Suspect]
     Dosage: MG, ONCE/HOUR, INTRATHECAL
     Route: 037
     Dates: end: 20110718
  2. PRIALT [Suspect]
     Indication: PAIN
     Dosage: UG, ONCE/HOUR, INTRATHECAL
     Route: 037
     Dates: end: 20110718

REACTIONS (3)
  - PNEUMONIA ASPIRATION [None]
  - CHRONIC OBSTRUCTIVE PULMONARY DISEASE [None]
  - DYSPHAGIA [None]
